FAERS Safety Report 6020269-X (Version None)
Quarter: 2008Q4

REPORT INFORMATION
  Report Type: 
  Country: None (occurrence: None)
  Receive Date: 20081226
  Receipt Date: 20081219
  Transmission Date: 20090506
  Serious: Yes (Other)
  Sender: FDA-Public Use
  Company Number: PHHY2008AR32778

PATIENT
  Age: 76 Year

DRUGS (2)
  1. EXELON [Suspect]
     Dosage: 5MG
     Route: 062
  2. EXELON [Suspect]
     Dosage: 10MG
     Route: 062

REACTIONS (2)
  - ARRHYTHMIA [None]
  - CARDIAC ELECTROPHYSIOLOGIC STUDY ABNORMAL [None]
